FAERS Safety Report 7429344-6 (Version None)
Quarter: 2011Q2

REPORT INFORMATION
  Report Type: 
  Country: None (occurrence: None)
  Receive Date: 20110418
  Receipt Date: 20110418
  Transmission Date: 20111010
  Serious: No
  Sender: FDA-Public Use
  Company Number: None

PATIENT
  Age: 70 Year
  Sex: Female
  Weight: 68.0396 kg

DRUGS (2)
  1. DENAVIR [Suspect]
     Indication: HEPATITIS
     Dosage: APPLY SMALL AMOUNT OF CREAM TO EVERY 4 HOURS TOP
     Route: 061
     Dates: start: 20110414, end: 20110414
  2. DENAVIR [Suspect]
     Indication: ORAL DISORDER
     Dosage: APPLY SMALL AMOUNT OF CREAM TO EVERY 4 HOURS TOP
     Route: 061
     Dates: start: 20110414, end: 20110414

REACTIONS (3)
  - STOMATITIS [None]
  - NASAL DISORDER [None]
  - INCORRECT ROUTE OF DRUG ADMINISTRATION [None]
